FAERS Safety Report 15082842 (Version 1)
Quarter: 2018Q2

REPORT INFORMATION
  Report Type: Spontaneous
  Country: US (occurrence: US)
  Receive Date: 20180628
  Receipt Date: 20180628
  Transmission Date: 20180711
  Serious: No
  Sender: FDA-Public Use
  Company Number: US-009507513-1806USA007330

PATIENT
  Sex: Male

DRUGS (3)
  1. PRINIVIL [Suspect]
     Active Substance: LISINOPRIL
     Indication: BLOOD PRESSURE MEASUREMENT
  2. SUTENT [Suspect]
     Active Substance: SUNITINIB MALATE
     Dosage: 2 WEEKS ON/1 WEEK OFF
  3. SUTENT [Suspect]
     Active Substance: SUNITINIB MALATE
     Dosage: 28 DAYS ON/14 DAYS OFF
     Dates: start: 20170914

REACTIONS (2)
  - Cough [Unknown]
  - Drug ineffective [Recovering/Resolving]
